FAERS Safety Report 5444402-3 (Version None)
Quarter: 2007Q3

REPORT INFORMATION
  Report Type: 
  Country: None (occurrence: None)
  Receive Date: 20070906
  Receipt Date: 20070831
  Transmission Date: 20080115
  Serious: Yes (Other)
  Sender: FDA-Public Use
  Company Number: PHEH2007US11326

PATIENT
  Age: 46 Year
  Sex: Male

DRUGS (6)
  1. TEGRETOL [Suspect]
     Indication: CONVULSION
  2. PEGASYS [Suspect]
     Indication: HEPATITIS C
     Dates: start: 20070324
  3. COPEGUS [Suspect]
     Indication: HEPATITIS C
     Dates: start: 20070324
  4. DEPAKOTE [Suspect]
     Indication: CONVULSION
  5. EXCEDRIN (MIGRAINE) [Concomitant]
     Indication: MIGRAINE
     Dosage: 4 TABLETS, DAILY
  6. TRILEPTAL [Concomitant]

REACTIONS (14)
  - ABDOMINAL PAIN [None]
  - DRUG INTERACTION [None]
  - FATIGUE [None]
  - HAEMOGLOBIN DECREASED [None]
  - INSOMNIA [None]
  - MALAISE [None]
  - MEDICAL DEVICE IMPLANTATION [None]
  - MIGRAINE [None]
  - NIGHT SWEATS [None]
  - PLATELET COUNT DECREASED [None]
  - PRURITUS [None]
  - RED BLOOD CELL COUNT DECREASED [None]
  - WEIGHT DECREASED [None]
  - WHITE BLOOD CELL COUNT DECREASED [None]
